FAERS Safety Report 5303277-3 (Version None)
Quarter: 2007Q2

REPORT INFORMATION
  Report Type: 
  Country: None (occurrence: None)
  Receive Date: 20070420
  Receipt Date: 20070418
  Transmission Date: 20071010
  Serious: Yes (Hospitalization)
  Sender: FDA-Public Use
  Company Number: US-GLAXOSMITHKLINE-A0647805A

PATIENT
  Age: 72 Year
  Sex: Female

DRUGS (11)
  1. ADVAIR DISKUS 100/50 [Suspect]
     Indication: CHRONIC OBSTRUCTIVE PULMONARY DISEASE
     Dosage: 1PUFF TWICE PER DAY
     Route: 055
     Dates: start: 20060801
  2. NORVASC [Concomitant]
  3. ALLEGRA [Concomitant]
  4. TERAZOSIN HCL [Concomitant]
  5. TRICOR [Concomitant]
  6. NORMODYNE [Concomitant]
  7. MEVACOR [Concomitant]
  8. FLUNISOLIDE [Concomitant]
  9. ALBUTEROL [Concomitant]
  10. OXYGEN [Concomitant]
  11. XANAX [Concomitant]

REACTIONS (3)
  - PNEUMONIA [None]
  - VISION BLURRED [None]
  - VISUAL DISTURBANCE [None]
